FAERS Safety Report 8815623 (Version 2)
Quarter: 2012Q4

REPORT INFORMATION
  Report Type: 
  Country: US (occurrence: US)
  Receive Date: 20120928
  Receipt Date: 20121019
  Transmission Date: 20130627
  Serious: Yes (Other)
  Sender: FDA-Public Use
  Company Number: US-BAYER-2012-101579

PATIENT
  Age: 36 Year
  Sex: Female
  Weight: 82.54 kg

DRUGS (4)
  1. MIRENA [Suspect]
     Indication: CONTRACEPTION
     Dosage: 20 mcg/24hr, CONT
     Route: 015
     Dates: start: 2009
  2. PROZAC [Concomitant]
     Indication: ANXIETY
     Dosage: 40 mg, QD
     Route: 048
  3. PROZAC [Concomitant]
     Indication: DEPRESSION
  4. XANAX [Concomitant]
     Indication: SLEEP DISORDER THERAPY
     Dosage: UNK UNK, QD
     Route: 048

REACTIONS (4)
  - Vaginal haemorrhage [None]
  - Actinomyces test positive [None]
  - Vaginal discharge [None]
  - Pelvic pain [None]
